FAERS Safety Report 4444619-0 (Version None)
Quarter: 2004Q3

REPORT INFORMATION
  Report Type: 
  Country: None (occurrence: None)
  Receive Date: 20040909
  Receipt Date: 20040903
  Transmission Date: 20050211
  Serious: Yes (Death)
  Sender: FDA-Public Use
  Company Number: PHFR2004GB03382

PATIENT

DRUGS (1)
  1. GLEEVEC [Suspect]

REACTIONS (4)
  - HAEMORRHAGE [None]
  - METASTASES TO LIVER [None]
  - PLATELET COUNT DECREASED [None]
  - TUMOUR HAEMORRHAGE [None]
